FAERS Safety Report 25223465 (Version 1)
Quarter: 2025Q2

REPORT INFORMATION
  Report Type: Spontaneous
  Country: US (occurrence: US)
  Receive Date: 20250422
  Receipt Date: 20250422
  Transmission Date: 20250717
  Serious: Yes (Hospitalization)
  Sender: ROCHE
  Company Number: US-ROCHE-10000261689

PATIENT
  Sex: Female

DRUGS (4)
  1. XOLAIR PFS [Suspect]
     Active Substance: OMALIZUMAB
     Indication: Asthma
     Route: 058
     Dates: start: 202001
  2. XOLAIR PFS [Suspect]
     Active Substance: OMALIZUMAB
     Indication: Asthma
  3. SODIUM CHLORIDE [Concomitant]
     Active Substance: SODIUM CHLORIDE
     Route: 065
  4. GAMMAGARD LIQUID SOLUTION [Concomitant]

REACTIONS (2)
  - Pneumonia [Unknown]
  - Weight decreased [Unknown]
